FAERS Safety Report 11533741 (Version 1)
Quarter: 2015Q3

REPORT INFORMATION
  Report Type: Spontaneous
  Country: US (occurrence: US)
  Receive Date: 20150921
  Receipt Date: 20150921
  Transmission Date: 20151125
  Serious: No
  Sender: FDA-Public Use
  Company Number: US-ASTRAZENECA-2015SE88365

PATIENT
  Sex: Female

DRUGS (1)
  1. QUETIAPINE FUMARATE. [Suspect]
     Active Substance: QUETIAPINE FUMARATE
     Dosage: TWICE DAILY, SHE FIRST STATED THAT SHE TAKES 200MG, BUT LATER STATED THAT SHE TAKES 500MG
     Route: 048

REACTIONS (2)
  - Dizziness [Unknown]
  - Feeling abnormal [Unknown]
